FAERS Safety Report 10704539 (Version 1)
Quarter: 2015Q1

REPORT INFORMATION
  Report Type: Spontaneous
  Country: US (occurrence: US)
  Receive Date: 20150112
  Receipt Date: 20150112
  Transmission Date: 20150721
  Serious: No
  Sender: FDA-Public Use
  Company Number: US-SHIRE-US201409408

PATIENT
  Sex: Female

DRUGS (2)
  1. PENTASA [Suspect]
     Active Substance: MESALAMINE
     Indication: PRODUCT USED FOR UNKNOWN INDICATION
     Dosage: 2 G (250 MG CAPSULE), 2X/DAY:BID
     Route: 048
  2. PENTASA [Suspect]
     Active Substance: MESALAMINE
     Dosage: 1 G, 2X/DAY:BID (EVERY 12 HOURS)
     Route: 048

REACTIONS (2)
  - Diarrhoea [Recovered/Resolved]
  - Nausea [Recovered/Resolved]
